FAERS Safety Report 7536452-8 (Version None)
Quarter: 2011Q2

REPORT INFORMATION
  Report Type: 
  Country: None (occurrence: None)
  Receive Date: 20110608
  Receipt Date: 20110608
  Transmission Date: 20111010
  Serious: Yes (Hospitalization)
  Sender: FDA-Public Use
  Company Number: None

PATIENT
  Sex: Male
  Weight: 134 kg

DRUGS (8)
  1. LEVAQUIN [Concomitant]
  2. AMLODIPINE BESYLATE [Concomitant]
  3. HYDROCHLOROTHIAZIDE [Concomitant]
  4. LENALIDOMIDE [Suspect]
     Indication: HODGKIN'S DISEASE
     Dosage: 25MG Q DAY PO
     Route: 048
     Dates: start: 20110112
  5. ATENOLOL [Concomitant]
  6. ENALAPRIL MALEATE [Concomitant]
  7. GLIMEPIRIDE [Concomitant]
  8. LOVASTATIN [Concomitant]

REACTIONS (4)
  - PYREXIA [None]
  - CHEST X-RAY ABNORMAL [None]
  - FEBRILE NEUTROPENIA [None]
  - PANCYTOPENIA [None]
